FAERS Safety Report 13966335 (Version 1)
Quarter: 2017Q3

REPORT INFORMATION
  Report Type: Spontaneous
  Country: US (occurrence: US)
  Receive Date: 20170913
  Receipt Date: 20170913
  Transmission Date: 20171128
  Serious: Yes (Other)
  Sender: FDA-Public Use
  Company Number: US-JAZZ-2017-US-010648

PATIENT
  Sex: Male

DRUGS (9)
  1. NAPROXEN. [Suspect]
     Active Substance: NAPROXEN
     Indication: BACK DISORDER
  2. ALLOPURINOL. [Concomitant]
     Active Substance: ALLOPURINOL
  3. XYREM [Suspect]
     Active Substance: SODIUM OXYBATE
     Dosage: DOSE ADJUSTMENTS
     Route: 048
     Dates: start: 200802, end: 200810
  4. ADDERALL [Concomitant]
     Active Substance: AMPHETAMINE ASPARTATE\AMPHETAMINE SULFATE\DEXTROAMPHETAMINE SACCHARATE\DEXTROAMPHETAMINE SULFATE
  5. CLONIDINE. [Concomitant]
     Active Substance: CLONIDINE
  6. XYREM [Suspect]
     Active Substance: SODIUM OXYBATE
     Dosage: 4.5G, BID
     Route: 048
     Dates: start: 200810
  7. BUDEPRION [Concomitant]
     Active Substance: BUPROPION HYDROCHLORIDE
  8. HYDROCODONE BITARTRATE AND ACETAMINOPHEN [Concomitant]
     Active Substance: ACETAMINOPHEN\HYDROCODONE BITARTRATE
  9. XYREM [Suspect]
     Active Substance: SODIUM OXYBATE
     Indication: NARCOLEPSY
     Dosage: 2.25G, BID
     Route: 048
     Dates: start: 200802, end: 200802

REACTIONS (8)
  - Therapeutic response unexpected [Unknown]
  - Gingivitis [Not Recovered/Not Resolved]
  - Neck surgery [Unknown]
  - Gout [Recovering/Resolving]
  - Pre-existing condition improved [Unknown]
  - Tooth infection [Not Recovered/Not Resolved]
  - Back disorder [Unknown]
  - Drug ineffective [Unknown]
